FAERS Safety Report 9316343 (Version 1)
Quarter: 2013Q2

REPORT INFORMATION
  Report Type: Spontaneous
  Country: CH (occurrence: None)
  Receive Date: 20130522
  Receipt Date: 20130522
  Transmission Date: 20140414
  Serious: Yes (Life-Threatening, Hospitalization, Other)
  Sender: FDA-Public Use
  Company Number: TPG2013A00570

PATIENT
  Age: 79 Year
  Sex: Male

DRUGS (5)
  1. ACTOS (PIOGLITAZONE HYDROCHLORIDE) [Suspect]
     Indication: TYPE 2 DIABETES MELLITUS
     Dosage: (45 MG, 1 IN 1 D)?
     Dates: start: 200805, end: 201304
  2. GLUTRIL (GLIBORNURIDE) [Concomitant]
     Route: 048
  3. ALDACTONE (SPIRONOLACTONE) [Concomitant]
  4. CO-DIOVAN (HYDROCHLOROTHIAZIDE, VALSARTAN) [Concomitant]
  5. LANTUS (INSULIN GLARGINE) [Concomitant]

REACTIONS (1)
  - Renal cell carcinoma [None]
